FAERS Safety Report 9637887 (Version 4)
Quarter: 2014Q1

REPORT INFORMATION
  Report Type: Spontaneous
  Country: US (occurrence: None)
  Receive Date: 20131018
  Receipt Date: 20140123
  Transmission Date: 20141002
  Serious: Yes (Other)
  Sender: FDA-Public Use
  Company Number: AUR-APL-2013-08689

PATIENT
  Age: 83 Year
  Sex: Female
  Weight: 47.17 kg

DRUGS (1)
  1. CIPROFLOXACIN [Suspect]
     Indication: ARTHROPOD BITE
     Dosage: 1000 MG (500 MG, 2 IN 1 D)
     Route: 048
     Dates: start: 20130909, end: 20130911

REACTIONS (10)
  - Syncope [None]
  - Oedema peripheral [None]
  - Insomnia [None]
  - Dysstasia [None]
  - Paraesthesia [None]
  - Pain in extremity [None]
  - Erythema [None]
  - Skin discolouration [None]
  - Drug hypersensitivity [None]
  - Reaction to drug excipients [None]
